FAERS Safety Report 19854103 (Version 1)
Quarter: 2021Q3

REPORT INFORMATION
  Report Type: Spontaneous
  Country: JP (occurrence: JP)
  Receive Date: 20210920
  Receipt Date: 20210920
  Transmission Date: 20211014
  Serious: Yes (Hospitalization, Other)
  Sender: FDA-Public Use
  Company Number: JP-SA-2021SA305621

PATIENT
  Age: 70 Year
  Sex: Male
  Weight: 58.9 kg

DRUGS (6)
  1. IRBESARTAN. [Concomitant]
     Active Substance: IRBESARTAN
     Dosage: UNK
  2. TS?1 [Concomitant]
     Active Substance: GIMERACIL\OTERACIL\TEGAFUR
     Dosage: UNK
     Dates: start: 20190725, end: 20200205
  3. ELPLAT [Suspect]
     Active Substance: OXALIPLATIN
     Indication: RECTAL CANCER
     Dosage: UNK, Q3W
     Route: 041
     Dates: start: 20190725, end: 20200205
  4. MAGNESIUM OXIDE. [Concomitant]
     Active Substance: MAGNESIUM OXIDE
     Dosage: UNK
  5. NIFEDIPINE. [Concomitant]
     Active Substance: NIFEDIPINE
     Dosage: UNK(SLOW RELEASE TABLET)
  6. AVASTIN [Suspect]
     Active Substance: BEVACIZUMAB
     Indication: RECTAL CANCER
     Dosage: UNK, Q3W
     Route: 041
     Dates: start: 20190725, end: 20200205

REACTIONS (3)
  - Large intestine perforation [Recovering/Resolving]
  - Orchitis [Recovering/Resolving]
  - Fournier^s gangrene [Recovering/Resolving]
